FAERS Safety Report 5071634-9 (Version None)
Quarter: 2006Q3

REPORT INFORMATION
  Report Type: 
  Country: None (occurrence: None)
  Receive Date: 20060804
  Receipt Date: 20060718
  Transmission Date: 20061208
  Serious: Yes (Life-Threatening, Hospitalization, Disabling, Other)
  Sender: FDA-Public Use
  Company Number: US-MERCK-0607USA03926

PATIENT
  Age: 49 Year
  Sex: Male
  Weight: 75 kg

DRUGS (6)
  1. SINGULAIR [Suspect]
     Indication: ASTHMA
     Route: 048
     Dates: start: 20051201, end: 20060713
  2. PREDNISONE [Concomitant]
     Indication: ASTHMA
     Route: 048
     Dates: start: 20051201
  3. ADVAIR DISKUS 100/50 [Concomitant]
     Indication: ASTHMA
     Route: 055
     Dates: start: 20050601
  4. ALBUTEROL [Concomitant]
     Indication: ASTHMA
     Route: 055
     Dates: start: 20050601
  5. FLONASE [Concomitant]
     Indication: RHINITIS ALLERGIC
     Route: 065
     Dates: start: 20050601
  6. CLARITIN [Concomitant]
     Indication: RHINITIS ALLERGIC
     Route: 048
     Dates: start: 20050601

REACTIONS (1)
  - ALLERGIC GRANULOMATOUS ANGIITIS [None]
